FAERS Safety Report 7767321-6 (Version None)
Quarter: 2011Q3

REPORT INFORMATION
  Report Type: 
  Country: None (occurrence: None)
  Receive Date: 20110922
  Receipt Date: 20100728
  Transmission Date: 20111222
  Serious: No
  Sender: FDA-Public Use
  Company Number: US-ASTRAZENECA-2010SE35345

PATIENT
  Age: 53 Year
  Sex: Female

DRUGS (14)
  1. TRAMADOL HCL [Concomitant]
     Route: 048
  2. SEROQUEL XR [Suspect]
     Indication: BIPOLAR I DISORDER
     Route: 048
     Dates: start: 20100628, end: 20100707
  3. HYDROCODONE [Concomitant]
     Dosage: 10/500 MG Q3D
     Route: 048
  4. CRESTOR [Concomitant]
     Route: 048
  5. NEXIUM [Concomitant]
     Route: 048
  6. DEPAKOTE [Concomitant]
     Route: 048
  7. XANAX [Concomitant]
     Indication: ANXIETY
     Route: 048
  8. SINGULAIR [Concomitant]
     Indication: ASTHMA
     Route: 048
  9. GLYBURIDE [Concomitant]
     Indication: DIABETES MELLITUS
     Route: 048
  10. MICARDIS [Concomitant]
     Indication: HYPERTENSION
     Route: 048
  11. LOVAZA [Concomitant]
  12. ASPIRIN [Concomitant]
     Route: 048
  13. SYNTHROID [Concomitant]
     Route: 048
  14. LORATADINE [Concomitant]
     Indication: HYPERSENSITIVITY
     Route: 048

REACTIONS (3)
  - MANIA [None]
  - GLOSSITIS [None]
  - AGITATION [None]
